FAERS Safety Report 5872127-9 (Version None)
Quarter: 2008Q3

REPORT INFORMATION
  Report Type: 
  Country: None (occurrence: None)
  Receive Date: 20080902
  Receipt Date: 20080130
  Transmission Date: 20090109
  Serious: Yes (Death)
  Sender: FDA-Public Use
  Company Number: 2008S1001250

PATIENT
  Age: 73 Year
  Sex: Female

DRUGS (2)
  1. PHOSPHORAL (SODIUM PHOSPHATE DIBASIC/SODIUM PHOSPHATE MONOBASIC (ANHYD [Suspect]
     Indication: GASTRIC LAVAGE
     Dosage: 1 DF; PO, 1 DF; 169; PO
     Route: 048
     Dates: start: 20061214, end: 20061214
  2. VOLTAREN (BEING QUERIED) [Concomitant]

REACTIONS (3)
  - ABDOMINAL PAIN [None]
  - MALAISE [None]
  - MELAENA [None]
